FAERS Safety Report 10080444 (Version 1)
Quarter: 2014Q2

REPORT INFORMATION
  Report Type: Report from Study
  Country: US (occurrence: US)
  Receive Date: 20140416
  Receipt Date: 20140416
  Transmission Date: 20141212
  Serious: Yes (Other)
  Sender: FDA-Public Use
  Company Number: US-ROCHE-1383042

PATIENT
  Age: 29 Year
  Sex: Female
  Weight: 52.66 kg

DRUGS (1)
  1. ACTEMRA [Suspect]
     Indication: RHEUMATOID ARTHRITIS
     Dosage: MOST RECENT DOSE RECEIVED ON 26 MAR 2014.
     Route: 058
     Dates: start: 201402

REACTIONS (2)
  - Nervousness [Recovered/Resolved]
  - Palpitations [Recovered/Resolved]
